FAERS Safety Report 10844275 (Version 3)
Quarter: 2015Q1

REPORT INFORMATION
  Report Type: Report from Study
  Country: CN (occurrence: CN)
  Receive Date: 20150220
  Receipt Date: 20150311
  Transmission Date: 20150721
  Serious: Yes (Hospitalization, Other)
  Sender: FDA-Public Use
  Company Number: CN-GLAXOSMITHKLINE-CN2014GSK035151

PATIENT
  Age: 36 Year
  Sex: Female

DRUGS (13)
  1. ELTROMBOPAG [Suspect]
     Active Substance: ELTROMBOPAG
     Indication: IMMUNE THROMBOCYTOPENIC PURPURA
     Dosage: 25 MG, QD
     Dates: start: 20140225, end: 20150212
  2. POTASSIUM CHLORIDE SUSTAINED RELEASE TABLETS [Concomitant]
     Dosage: 1 DF, QD
     Route: 048
     Dates: start: 20150131
  3. PREDNISONE. [Concomitant]
     Active Substance: PREDNISONE
     Dosage: 30 MG, BID
     Dates: start: 20150103
  4. PREDNISONE. [Concomitant]
     Active Substance: PREDNISONE
     Dosage: 60 UNK, UNK
     Dates: start: 20150130, end: 20150203
  5. NYSTATIN TABLETS [Concomitant]
     Indication: GASTROINTESTINAL CANDIDIASIS
     Dosage: 1 G, TID
     Route: 048
     Dates: start: 20141208
  6. CALCIUM CARBONATE. [Concomitant]
     Active Substance: CALCIUM CARBONATE
     Indication: CALCIUM DEFICIENCY
     Dosage: 600 MG, QD
     Route: 048
     Dates: start: 20141208, end: 20141213
  7. PREDNISONE. [Concomitant]
     Active Substance: PREDNISONE
     Dosage: 50 UNK, UNK
     Dates: start: 20150204
  8. POTASSIUM CHLORIDE SUSTAINED RELEASE TABLETS [Concomitant]
     Indication: PROPHYLAXIS
     Dosage: 0.5 MG, QD
     Route: 048
     Dates: start: 20141208
  9. ROCALTROL [Concomitant]
     Active Substance: CALCITRIOL
     Indication: HYPOTHYROIDISM
     Dosage: 1 DF, QD
     Route: 048
     Dates: start: 20150131
  10. PREDNISONE. [Concomitant]
     Active Substance: PREDNISONE
     Dosage: 70 UNK, UNK
     Dates: start: 20150105, end: 20150129
  11. OMEPRAZOLE. [Concomitant]
     Active Substance: OMEPRAZOLE
     Indication: PROPHYLAXIS
     Dosage: 1 DF, QD
     Route: 048
     Dates: start: 20150131
  12. LEVOTHYROXINE SODIUM TABLETS [Concomitant]
     Active Substance: LEVOTHYROXINE SODIUM
     Dosage: 50 MG, QD
     Route: 048
     Dates: start: 20141208, end: 20141213
  13. PREDNISONE. [Concomitant]
     Active Substance: PREDNISONE
     Indication: AUTOIMMUNE DISORDER
     Dosage: 5 MG, QD
     Route: 048
     Dates: start: 20141208

REACTIONS (1)
  - Systemic lupus erythematosus [Not Recovered/Not Resolved]

NARRATIVE: CASE EVENT DATE: 20141128
